FAERS Safety Report 8386482-1 (Version None)
Quarter: 2012Q2

REPORT INFORMATION
  Report Type: 
  Country: None (occurrence: None)
  Receive Date: 20120525
  Receipt Date: 20120521
  Transmission Date: 20120825
  Serious: No
  Sender: FDA-Public Use
  Company Number: US-ASTRAZENECA-2011SE41425

PATIENT
  Age: 51 Year
  Sex: Female

DRUGS (6)
  1. PRILOSEC [Concomitant]
     Dosage: ONCE A DAY
  2. ROLAIDS [Concomitant]
  3. NEXIUM [Suspect]
     Indication: GASTROOESOPHAGEAL REFLUX DISEASE
     Dosage: EVERYDAY
     Route: 048
     Dates: start: 20040101, end: 20110101
  4. NEXIUM [Suspect]
     Route: 048
     Dates: start: 20010101, end: 20110101
  5. CALCIUM CARBONATE [Concomitant]
  6. BISMUTH SUBSALICYLATE [Concomitant]

REACTIONS (8)
  - OSTEOPENIA [None]
  - EMOTIONAL DISTRESS [None]
  - PAIN [None]
  - ANKLE FRACTURE [None]
  - LOWER LIMB FRACTURE [None]
  - BONE DENSITY DECREASED [None]
  - FOOT FRACTURE [None]
  - DEPRESSION [None]
